FAERS Safety Report 17378735 (Version 1)
Quarter: 2020Q1

REPORT INFORMATION
  Report Type: Spontaneous
  Country: CH (occurrence: CH)
  Receive Date: 20200206
  Receipt Date: 20200206
  Transmission Date: 20200409
  Serious: Yes (Congenital Anomaly, Other)
  Sender: FDA-Public Use
  Company Number: CH-ASTRAZENECA-2020SE14922

PATIENT

DRUGS (4)
  1. SEROQUEL [Suspect]
     Active Substance: QUETIAPINE FUMARATE
     Indication: BIPOLAR I DISORDER
     Dosage: 200.0MG UNKNOWN
     Route: 064
  2. SEROQUEL [Suspect]
     Active Substance: QUETIAPINE FUMARATE
     Indication: DECREASED APPETITE
     Dosage: 200.0MG UNKNOWN
     Route: 064
  3. SEROQUEL [Suspect]
     Active Substance: QUETIAPINE FUMARATE
     Indication: BIPOLAR I DISORDER
     Dosage: 25.0MG UNKNOWN
     Route: 064
  4. SEROQUEL [Suspect]
     Active Substance: QUETIAPINE FUMARATE
     Indication: DECREASED APPETITE
     Dosage: 25.0MG UNKNOWN
     Route: 064

REACTIONS (4)
  - Exposure during pregnancy [Not Recovered/Not Resolved]
  - Talipes [Not Recovered/Not Resolved]
  - Abortion induced [Unknown]
  - Congenital central nervous system anomaly [Not Recovered/Not Resolved]

NARRATIVE: CASE EVENT DATE: 20190811
